FAERS Safety Report 17283166 (Version 7)
Quarter: 2020Q2

REPORT INFORMATION
  Report Type: Spontaneous
  Country: US (occurrence: US)
  Receive Date: 20200117
  Receipt Date: 20200610
  Transmission Date: 20200713
  Serious: No
  Sender: FDA-Public Use
  Company Number: US-PFIZER INC-2016565883

PATIENT
  Age: 64 Year
  Sex: Female

DRUGS (1)
  1. ESTRING [Suspect]
     Active Substance: ESTRADIOL
     Indication: PHYSICAL EXAMINATION ABNORMAL
     Dosage: 2 MG, EVERY 3 MONTHS (1 RING 90 D)
     Route: 067

REACTIONS (3)
  - Fibromyalgia [Unknown]
  - Intentional product misuse [Unknown]
  - Back pain [Unknown]
